FAERS Safety Report 5564363-6 (Version None)
Quarter: 2007Q4

REPORT INFORMATION
  Report Type: 
  Country: None (occurrence: None)
  Receive Date: 20071218
  Receipt Date: 20071211
  Transmission Date: 20080405
  Serious: Yes (Other)
  Sender: FDA-Public Use
  Company Number: AR-ASTRAZENECA-2007UW18040

PATIENT
  Age: 27712 Day
  Sex: Male
  Weight: 98 kg

DRUGS (4)
  1. ROSUVASTATIN [Suspect]
     Indication: CARDIOVASCULAR EVENT PROPHYLAXIS
     Route: 048
     Dates: start: 20060504, end: 20070815
  2. TERLOC DUO [Concomitant]
     Indication: HYPERTENSION
     Dosage: 25/10 MG
     Route: 048
     Dates: start: 20050824
  3. HYGROTON [Concomitant]
     Indication: HYPERTENSION
     Dosage: 12.5 MG
     Route: 048
     Dates: start: 20050809, end: 20071206
  4. ASPIRIN [Concomitant]
     Indication: PROPHYLAXIS
     Route: 048
     Dates: start: 20060509, end: 20070507

REACTIONS (1)
  - MYELODYSPLASTIC SYNDROME [None]
